FAERS Safety Report 6009989-0 (Version None)
Quarter: 2008Q4

REPORT INFORMATION
  Report Type: 
  Country: None (occurrence: None)
  Receive Date: 20081218
  Receipt Date: 20081211
  Transmission Date: 20090506
  Serious: Yes (Other)
  Sender: FDA-Public Use
  Company Number: CA-TEVA-182372USA

PATIENT
  Age: 42 Year
  Sex: Male

DRUGS (8)
  1. GEMFIBROZIL [Suspect]
     Indication: DYSLIPIDAEMIA
     Route: 048
     Dates: start: 20081027, end: 20081117
  2. MESALAMINE [Concomitant]
  3. SERTRALINE [Concomitant]
  4. OXYCODONE HCL [Concomitant]
  5. QUETIAPINE FUMARATE [Concomitant]
     Dosage: HS
  6. PANTOPRAZOLE SODIUM [Concomitant]
  7. TOPIRAMATE [Concomitant]
  8. ZOPICLONE [Concomitant]
     Dosage: HS

REACTIONS (4)
  - BLINDNESS [None]
  - IMPAIRED DRIVING ABILITY [None]
  - MYALGIA [None]
  - VISION BLURRED [None]
